FAERS Safety Report 5811778-4 (Version None)
Quarter: 2008Q3

REPORT INFORMATION
  Report Type: 
  Country: None (occurrence: None)
  Receive Date: 20080715
  Receipt Date: 20080715
  Transmission Date: 20090109
  Serious: Yes (Death)
  Sender: FDA-Public Use
  Company Number: None

PATIENT
  Sex: Male
  Weight: 35.5 kg

DRUGS (2)
  1. BOTOX [Suspect]
     Indication: MUSCLE SPASTICITY
     Dosage: 300 UNITS 02/04/200 IM
     Route: 030
     Dates: start: 20030204, end: 20030204
  2. BOTOX [Suspect]
     Indication: GAIT DISTURBANCE
     Dosage: 400 UNITS 01/14/2004 IM
     Route: 030
     Dates: start: 20040114, end: 20040114

REACTIONS (1)
  - DEATH [None]
